FAERS Safety Report 7093460-1 (Version None)
Quarter: 2010Q4

REPORT INFORMATION
  Report Type: 
  Country: None (occurrence: None)
  Receive Date: 20101029
  Receipt Date: 20101012
  Transmission Date: 20110411
  Serious: Yes (Other)
  Sender: FDA-Public Use
  Company Number: 2010BI035659

PATIENT
  Age: 45 Year
  Sex: Female

DRUGS (1)
  1. ZEVALIN [Suspect]
     Indication: FOLLICLE CENTRE LYMPHOMA, FOLLICULAR GRADE I, II, III
     Dosage: ; 1X; IV
     Route: 042
     Dates: start: 20100928, end: 20100928

REACTIONS (1)
  - BONE MARROW FAILURE [None]
